FAERS Safety Report 12730926 (Version 1)
Quarter: 2016Q3

REPORT INFORMATION
  Report Type: Spontaneous
  Country: US (occurrence: US)
  Receive Date: 20160909
  Receipt Date: 20160909
  Transmission Date: 20161109
  Serious: Yes (Life-Threatening, Hospitalization, Disabling)
  Sender: FDA-Public Use
  Company Number: None

PATIENT
  Age: 62 Year
  Sex: Female
  Weight: 78.02 kg

DRUGS (12)
  1. RIBAVIRIN. [Suspect]
     Active Substance: RIBAVIRIN
  2. VIT B [Concomitant]
     Active Substance: VITAMIN B
  3. INTERFERON ALFA-2B [Suspect]
     Active Substance: INTERFERON ALFA-2B
     Indication: HEPATITIS C
     Dates: start: 20120114, end: 201205
  4. FLUOREXTINE [Concomitant]
  5. TRAZODONE [Concomitant]
     Active Substance: TRAZODONE HYDROCHLORIDE
  6. INTERFERON ALFA-2B [Suspect]
     Active Substance: INTERFERON ALFA-2B
     Indication: LIVER DISORDER
     Dates: start: 20120114, end: 201205
  7. VICTRELIS [Suspect]
     Active Substance: BOCEPREVIR
  8. TIZADINE [Concomitant]
     Active Substance: TIZANIDINE HYDROCHLORIDE
  9. ALLERGY MEDS [Concomitant]
  10. HYDROCHLOROTHIAZIDE. [Concomitant]
     Active Substance: HYDROCHLOROTHIAZIDE
  11. LOSARTAN. [Concomitant]
     Active Substance: LOSARTAN
  12. VITAMIN D [Concomitant]
     Active Substance: CHOLECALCIFEROL

REACTIONS (4)
  - Memory impairment [None]
  - Loss of consciousness [None]
  - Incoherent [None]
  - Malaise [None]

NARRATIVE: CASE EVENT DATE: 201203
